FAERS Safety Report 25540050 (Version 1)
Quarter: 2025Q3

REPORT INFORMATION
  Report Type: Spontaneous
  Country: CN (occurrence: CN)
  Receive Date: 20250710
  Receipt Date: 20250710
  Transmission Date: 20251021
  Serious: Yes (Hospitalization, Other)
  Sender: NOVARTIS
  Company Number: CN-002147023-NVSC2025CN107740

PATIENT
  Age: 63 Year
  Sex: Male

DRUGS (2)
  1. MEKINIST [Suspect]
     Active Substance: TRAMETINIB DIMETHYL SULFOXIDE
     Indication: Targeted cancer therapy
     Dosage: 1 DOSAGE FORM, QD
     Route: 048
     Dates: start: 20250515, end: 20250609
  2. TAFINLAR [Suspect]
     Active Substance: DABRAFENIB MESYLATE
     Indication: Targeted cancer therapy
     Dosage: 2 DOSAGE FORM, BID
     Route: 048
     Dates: start: 20250515, end: 20250609

REACTIONS (11)
  - Hyperpyrexia [Recovered/Resolved]
  - Nausea [Recovering/Resolving]
  - Asthenia [Recovering/Resolving]
  - Temperature intolerance [Recovering/Resolving]
  - Chills [Recovering/Resolving]
  - Rash erythematous [Recovering/Resolving]
  - Myalgia [Recovering/Resolving]
  - Pseudomonas infection [Recovering/Resolving]
  - Aspergillus infection [Recovering/Resolving]
  - Secretion discharge [Recovering/Resolving]
  - Roseolovirus test positive [Recovering/Resolving]

NARRATIVE: CASE EVENT DATE: 20250528
